FAERS Safety Report 5702007-0 (Version None)
Quarter: 2008Q2

REPORT INFORMATION
  Report Type: 
  Country: None (occurrence: None)
  Receive Date: 20080411
  Receipt Date: 20080401
  Transmission Date: 20081010
  Serious: Yes (Hospitalization)
  Sender: FDA-Public Use
  Company Number: IT-JNJFOC-20080401249

PATIENT
  Age: 34 Year
  Sex: Male

DRUGS (4)
  1. REMICADE [Suspect]
     Indication: PSORIATIC ARTHROPATHY
  2. HUMIRA [Suspect]
     Indication: PSORIATIC ARTHROPATHY
  3. METHYLPREDNISOLONE [Concomitant]
     Indication: PSORIATIC ARTHROPATHY
  4. NEOTIGASON [Concomitant]
     Indication: PSORIATIC ARTHROPATHY

REACTIONS (2)
  - ERYTHEMA [None]
  - HODGKIN'S DISEASE STAGE II [None]
